FAERS Safety Report 8296667-0 (Version None)
Quarter: 2012Q2

REPORT INFORMATION
  Report Type: 
  Country: None (occurrence: None)
  Receive Date: 20120418
  Receipt Date: 20120418
  Transmission Date: 20120825
  Serious: Yes (Other)
  Sender: FDA-Public Use
  Company Number: None

PATIENT
  Sex: Female
  Weight: 84.368 kg

DRUGS (1)
  1. CITALOPRAM HYDROBROMIDE [Suspect]
     Indication: DEPRESSION
     Dosage: 20.0 MG
     Route: 048
     Dates: start: 20120409, end: 20120414

REACTIONS (3)
  - ANXIETY [None]
  - INSOMNIA [None]
  - MENTAL STATUS CHANGES [None]
